FAERS Safety Report 5772596-9 (Version None)
Quarter: 2008Q2

REPORT INFORMATION
  Report Type: 
  Country: None (occurrence: None)
  Receive Date: 20080613
  Receipt Date: 20080606
  Transmission Date: 20081010
  Serious: Yes (Hospitalization, Other)
  Sender: FDA-Public Use
  Company Number: DE-BAYER-200814692GPV

PATIENT
  Age: 50 Year
  Sex: Female
  Weight: 60 kg

DRUGS (4)
  1. AVELOX [Suspect]
     Indication: BRONCHITIS
     Dosage: TOTAL DAILY DOSE: 400 MG  UNIT DOSE: 400 MG
     Route: 048
     Dates: start: 20080104, end: 20080108
  2. UNACID [Concomitant]
     Indication: BRONCHITIS
     Route: 048
  3. SPASMO-MUCOSOLVAN [Concomitant]
     Indication: DRUG USE FOR UNKNOWN INDICATION
     Dosage: TOTAL DAILY DOSE: 8 ML
     Route: 065
     Dates: start: 20080104, end: 20080108
  4. NOVAMINSULFON [Concomitant]
     Indication: DRUG USE FOR UNKNOWN INDICATION
     Route: 065

REACTIONS (9)
  - APHASIA [None]
  - DERMATITIS BULLOUS [None]
  - DISTURBANCE IN ATTENTION [None]
  - DIZZINESS [None]
  - DYSGEUSIA [None]
  - HEARING IMPAIRED [None]
  - PAROSMIA [None]
  - PRURITUS [None]
  - VISION BLURRED [None]
